FAERS Safety Report 13721907 (Version 4)
Quarter: 2018Q1

REPORT INFORMATION
  Report Type: Spontaneous
  Country: US (occurrence: US)
  Receive Date: 20170706
  Receipt Date: 20180131
  Transmission Date: 20180508
  Serious: Yes (Hospitalization)
  Sender: FDA-Public Use
  Company Number: US-CELGENEUS-USA-20170700272

PATIENT
  Age: 63 Year
  Sex: Female

DRUGS (5)
  1. POMALYST [Suspect]
     Active Substance: POMALIDOMIDE
     Indication: PLASMA CELL MYELOMA RECURRENT
     Dosage: 4 MILLIGRAM
     Route: 048
     Dates: start: 201307
  2. POMALYST [Suspect]
     Active Substance: POMALIDOMIDE
     Dosage: 2 MILLIGRAM
     Route: 048
     Dates: start: 201309
  3. POMALYST [Suspect]
     Active Substance: POMALIDOMIDE
     Dosage: 4-1MG
     Route: 048
     Dates: start: 201609
  4. POMALYST [Suspect]
     Active Substance: POMALIDOMIDE
     Dosage: 3 MILLIGRAM
     Route: 048
     Dates: start: 20170612
  5. POMALYST [Suspect]
     Active Substance: POMALIDOMIDE
     Dosage: 2 MILLIGRAM
     Route: 048
     Dates: start: 201801

REACTIONS (3)
  - Fatigue [Not Recovered/Not Resolved]
  - Somnolence [Unknown]
  - Pyrexia [Unknown]

NARRATIVE: CASE EVENT DATE: 20170614
